FAERS Safety Report 15226692 (Version 1)
Quarter: 2018Q3

REPORT INFORMATION
  Report Type: Spontaneous
  Country: US (occurrence: US)
  Receive Date: 20180801
  Receipt Date: 20180801
  Transmission Date: 20181010
  Serious: No
  Sender: FDA-Public Use
  Company Number: US-SA-2018SA206015

PATIENT
  Sex: Male

DRUGS (9)
  1. MAGNESIUM [Concomitant]
     Active Substance: MAGNESIUM
  2. SUPER B COMPL [Concomitant]
  3. NORTRIPTYLINE [Concomitant]
     Active Substance: NORTRIPTYLINE
  4. TRAMADOL HCL [Concomitant]
     Active Substance: TRAMADOL HYDROCHLORIDE
  5. KEVZARA [Suspect]
     Active Substance: SARILUMAB
     Dosage: 200 MG, QOW
     Route: 058
  6. HYDROCODONE [Concomitant]
     Active Substance: HYDROCODONE
  7. DULOXETINE HCL [Concomitant]
     Active Substance: DULOXETINE HYDROCHLORIDE
  8. DICLOFENAC POTASSIUM. [Concomitant]
     Active Substance: DICLOFENAC POTASSIUM
  9. TIZANIDINE HCL [Concomitant]
     Active Substance: TIZANIDINE HYDROCHLORIDE

REACTIONS (2)
  - Pain in extremity [Unknown]
  - Arthralgia [Unknown]
